FAERS Safety Report 21660154 (Version 2)
Quarter: 2022Q4

REPORT INFORMATION
  Report Type: Report from Study
  Country: NL (occurrence: NL)
  Receive Date: 20221130
  Receipt Date: 20221228
  Transmission Date: 20230112
  Serious: Yes (Other)
  Sender: FDA-Public Use
  Company Number: NL-AMGEN-NLDSL2022204242

PATIENT
  Age: 71 Year
  Sex: Female

DRUGS (11)
  1. XGEVA [Suspect]
     Active Substance: DENOSUMAB
     Indication: Prophylaxis
     Dosage: 120 MILLIGRAM/1.7 MILLILITRE, Q4WK
     Route: 058
  2. CALCIUM CARBONATE\CHOLECALCIFEROL [Concomitant]
     Active Substance: CALCIUM CARBONATE\CHOLECALCIFEROL
     Dosage: 2.5 GRAM/880IE (1000MG CA), QD (1D1T)
  3. CANDESARTAN [Concomitant]
     Active Substance: CANDESARTAN
     Dosage: 4 MILLIGRAM, QD (1D1T)
  4. CANDESARTAN [Concomitant]
     Active Substance: CANDESARTAN
     Dosage: 4 MILLIGRAM, 1D1.5T
     Route: 065
  5. IVERMECTIN [Concomitant]
     Active Substance: IVERMECTIN
     Dosage: 10 MILLIGRAM PER GRAM
  6. LACTULOSE [Concomitant]
     Active Substance: LACTULOSE
     Dosage: 670 MILLIGRAM PER MILLILITRE (500MG/G) 2D20ML
  7. VITAMIN K [Concomitant]
     Active Substance: PHYTONADIONE
     Dosage: LIQUID FOOD WITH A.O VITAMINE K, QD
  8. ZOPICLONE [Concomitant]
     Active Substance: ZOPICLONE
     Dosage: 7.5 MILLIGRAM, 1D0.25T
  9. ZOPICLONE [Concomitant]
     Active Substance: ZOPICLONE
     Route: 065
  10. CODEINE [Concomitant]
     Active Substance: CODEINE
     Dosage: 10 MILLIGRAM, QD (WHEN NEEDED)
  11. HYDROCORTISONE;MICONAZOLE [Concomitant]
     Dosage: 10/20MG/G 2D APPLY CREAM

REACTIONS (3)
  - Metastases to bone [Unknown]
  - Neoplasm malignant [Not Recovered/Not Resolved]
  - Off label use [Unknown]
